FAERS Safety Report 16151484 (Version 3)
Quarter: 2021Q3

REPORT INFORMATION
  Report Type: Report from Study
  Country: US (occurrence: US)
  Receive Date: 20190403
  Receipt Date: 20210819
  Transmission Date: 20211014
  Serious: Yes (Other)
  Sender: FDA-Public Use
  Company Number: US-PFIZER INC-2019139099

PATIENT
  Age: 31 Year
  Sex: Female

DRUGS (4)
  1. TACROLIMUS. [Suspect]
     Active Substance: TACROLIMUS
     Indication: IMMUNOSUPPRESSANT DRUG THERAPY
     Dosage: 0.05 MG/KG, 2X/DAY (INITIATED)
  2. PREDNISONE. [Concomitant]
     Active Substance: PREDNISONE
     Indication: IMMUNOSUPPRESSANT DRUG THERAPY
     Dosage: 5 MG, DAILY
  3. MYCOPHENOLATE MOFETIL. [Concomitant]
     Active Substance: MYCOPHENOLATE MOFETIL
     Indication: IMMUNOSUPPRESSANT DRUG THERAPY
     Dosage: 2000 MG, DAILY
  4. TACROLIMUS. [Suspect]
     Active Substance: TACROLIMUS
     Dosage: TITRATED TO GOAL TROUGH LEVELS OF 8?12 NG/ML

REACTIONS (3)
  - Drug intolerance [Unknown]
  - Toxicity to various agents [Unknown]
  - Neurotoxicity [Unknown]
